FAERS Safety Report 17116449 (Version 2)
Quarter: 2020Q1

REPORT INFORMATION
  Report Type: Report from Study
  Country: NL (occurrence: NL)
  Receive Date: 20191205
  Receipt Date: 20200303
  Transmission Date: 20200409
  Serious: Yes (Hospitalization)
  Sender: FDA-Public Use
  Company Number: NL-MYLANLABS-2019M1118911

PATIENT

DRUGS (4)
  1. OXALIPLATIN. [Suspect]
     Active Substance: OXALIPLATIN
     Indication: COLORECTAL CANCER
     Dosage: ON 12/JUN/2019, PATIENT RECEIVED MOST RECENT DOSE PRIOR TO AE.
     Route: 042
     Dates: start: 20190430
  2. LEUCOVORIN                         /00566701/ [Suspect]
     Active Substance: LEUCOVORIN
     Indication: COLORECTAL CANCER
     Dosage: ON 12/JUN/2019, PATIENT RECEIVED MOST RECENT DOSE PRIOR TO AE. IN 120 MINUTES
     Route: 042
     Dates: start: 20190430
  3. BEVACIZUMAB. [Suspect]
     Active Substance: BEVACIZUMAB
     Indication: COLORECTAL CANCER
     Dosage: ON 12/JUN/2019, PATIENT RECEIVED MOST RECENT DOSE. 15-30 MINUTES
     Route: 042
     Dates: start: 20190430
  4. 5 FU [Suspect]
     Active Substance: FLUOROURACIL
     Indication: COLORECTAL CANCER
     Dosage: ON 12/JUN/2019, PATIENT RECEIVED MOST RECENT DOSE PRIOR TO AE. 400 MG/M2 WITHIN 4 MINUTES,DA
     Route: 042
     Dates: start: 20190430

REACTIONS (2)
  - Disease progression [Not Recovered/Not Resolved]
  - Dyspnoea [Not Recovered/Not Resolved]

NARRATIVE: CASE EVENT DATE: 20190613
